FAERS Safety Report 8996397 (Version 1)
Quarter: 2013Q1

REPORT INFORMATION
  Report Type: Spontaneous
  Country: US (occurrence: US)
  Receive Date: 20130104
  Receipt Date: 20130104
  Transmission Date: 20140127
  Serious: No
  Sender: FDA-Public Use
  Company Number: US-BIOGENIDEC-2012BI064947

PATIENT
  Age: 54 Year
  Sex: Female

DRUGS (2)
  1. TYSABRI [Suspect]
     Indication: MULTIPLE SCLEROSIS
     Route: 042
     Dates: start: 20101222, end: 20111107
  2. TYSABRI [Suspect]
     Indication: MULTIPLE SCLEROSIS
     Route: 042
     Dates: start: 20120111

REACTIONS (10)
  - Muscle spasticity [Unknown]
  - Pain in extremity [Unknown]
  - Limb discomfort [Unknown]
  - Incontinence [Unknown]
  - Nocturia [Unknown]
  - Neurological symptom [Unknown]
  - Hypoaesthesia [Unknown]
  - Vibratory sense increased [Unknown]
  - Asthenia [Unknown]
  - Arthralgia [Unknown]
